FAERS Safety Report 5207215-3 (Version None)
Quarter: 2007Q1

REPORT INFORMATION
  Report Type: 
  Country: None (occurrence: None)
  Receive Date: 20070112
  Receipt Date: 20070108
  Transmission Date: 20070707
  Serious: Yes (Hospitalization)
  Sender: FDA-Public Use
  Company Number: FR-GLAXOSMITHKLINE-B0453697A

PATIENT
  Age: 56 Year
  Sex: Female

DRUGS (10)
  1. AUGMENTIN '125' [Suspect]
     Indication: ANTIBIOTIC PROPHYLAXIS
     Dosage: 1UNIT TWICE PER DAY
     Route: 042
     Dates: start: 20061115, end: 20061115
  2. ACETAMINOPHEN W/ PROPOXYPHENE HCL [Suspect]
     Dosage: 2UNIT THREE TIMES PER DAY
     Route: 048
     Dates: end: 20061129
  3. MYOLASTAN [Suspect]
     Dosage: 1UNIT PER DAY
     Route: 048
     Dates: end: 20061129
  4. DIPRIVAN [Suspect]
     Indication: ANAESTHESIA
     Dosage: 1UNIT SINGLE DOSE
     Route: 042
     Dates: start: 20061115, end: 20061115
  5. PERFALGAN [Suspect]
     Dosage: 1G FOUR TIMES PER DAY
     Route: 042
     Dates: start: 20061115
  6. OMEPRAZOLE [Suspect]
     Dosage: 40MG PER DAY
     Route: 042
     Dates: start: 20061115
  7. HYPNOVEL [Concomitant]
     Indication: ANAESTHESIA
     Route: 065
     Dates: start: 20061115, end: 20061115
  8. SUFENTA [Concomitant]
     Indication: ANAESTHESIA
     Route: 065
     Dates: start: 20061115, end: 20061115
  9. NIMBEX [Concomitant]
     Route: 065
     Dates: start: 20061115, end: 20061115
  10. LOVENOX [Concomitant]
     Route: 065

REACTIONS (3)
  - CONDITION AGGRAVATED [None]
  - CUTANEOUS LUPUS ERYTHEMATOSUS [None]
  - ERYTHEMA MULTIFORME [None]
